FAERS Safety Report 21571176 (Version 1)
Quarter: 2022Q4

REPORT INFORMATION
  Report Type: Spontaneous
  Country: US (occurrence: None)
  Receive Date: 20221108
  Receipt Date: 20221108
  Transmission Date: 20230112
  Serious: Yes (unspecified)
  Sender: FDA-Public Use
  Company Number: None

PATIENT
  Age: 36 Year
  Sex: Female

DRUGS (1)
  1. CALDOLOR [Suspect]
     Active Substance: IBUPROFEN
     Indication: Procedural pain
     Dosage: FREQUENCY : ONCE;?
     Route: 042
     Dates: start: 20220922, end: 20220922

REACTIONS (2)
  - Haemolysis [None]
  - Thrombosis [None]

NARRATIVE: CASE EVENT DATE: 20220922
